FAERS Safety Report 19272132 (Version 1)
Quarter: 2021Q2

REPORT INFORMATION
  Report Type: Spontaneous
  Country: US (occurrence: US)
  Receive Date: 20210519
  Receipt Date: 20210519
  Transmission Date: 20210717
  Serious: No
  Sender: FDA-Public Use
  Company Number: US-SA-2021SA162518

PATIENT
  Age: 8 Year
  Sex: Male

DRUGS (5)
  1. FLAREX [Concomitant]
     Active Substance: FLUOROMETHOLONE ACETATE
     Indication: CONJUNCTIVITIS
  2. HALOBETASOL [Concomitant]
     Active Substance: HALOBETASOL PROPIONATE
  3. DUPIXENT [Suspect]
     Active Substance: DUPILUMAB
     Indication: DERMATITIS ATOPIC
     Route: 058
     Dates: start: 20201015
  4. EPINEPHRINE. [Concomitant]
     Active Substance: EPINEPHRINE
  5. OLOPATADINE. [Concomitant]
     Active Substance: OLOPATADINE

REACTIONS (1)
  - Ocular hyperaemia [Unknown]
